FAERS Safety Report 6422600-X (Version None)
Quarter: 2009Q4

REPORT INFORMATION
  Report Type: 
  Country: None (occurrence: None)
  Receive Date: 20091102
  Receipt Date: 20091019
  Transmission Date: 20100525
  Serious: Yes (Hospitalization)
  Sender: FDA-Public Use
  Company Number: US-BAYER-200934283NA

PATIENT
  Age: 42 Year
  Sex: Female

DRUGS (1)
  1. BETASERON [Suspect]
     Indication: PRIMARY PROGRESSIVE MULTIPLE SCLEROSIS
     Dosage: WAS ON THE FULL DOSE
     Route: 058
     Dates: start: 20010101, end: 20090101

REACTIONS (5)
  - BLADDER DISORDER [None]
  - MULTIPLE SCLEROSIS [None]
  - PARAPLEGIA [None]
  - RENAL DISORDER [None]
  - VISION BLURRED [None]
